FAERS Safety Report 9815915 (Version 1)
Quarter: 2014Q1

REPORT INFORMATION
  Report Type: Report from Study
  Country: JP (occurrence: JP)
  Receive Date: 20140114
  Receipt Date: 20140114
  Transmission Date: 20141002
  Serious: Yes (Death, Hospitalization, Other)
  Sender: FDA-Public Use
  Company Number: PHHY2014JP003157

PATIENT
  Age: 65 Year
  Sex: Female
  Weight: 44 kg

DRUGS (5)
  1. AFINITOR [Suspect]
     Indication: PANCREATIC NEUROENDOCRINE TUMOUR
     Dosage: 10 MG, DAILY
     Route: 048
     Dates: start: 20120315, end: 20120409
  2. OXYCONTIN [Concomitant]
     Dosage: 300 MG
     Route: 048
  3. TAKEPRON [Concomitant]
     Dosage: 15 MG
     Route: 048
  4. OXINORM//ORGOTEIN [Concomitant]
     Dosage: 40 MG
     Route: 048
  5. MAXIPIME [Concomitant]
     Dosage: 2 G
     Dates: start: 20120328, end: 20120404

REACTIONS (7)
  - Malignant neoplasm progression [Fatal]
  - Anaemia [Not Recovered/Not Resolved]
  - C-reactive protein increased [Recovering/Resolving]
  - Infection [Recovering/Resolving]
  - Pyrexia [Recovering/Resolving]
  - White blood cell count increased [Recovering/Resolving]
  - Hypophosphataemia [Unknown]
